FAERS Safety Report 7168067-8 (Version None)
Quarter: 2010Q4

REPORT INFORMATION
  Report Type: 
  Country: None (occurrence: None)
  Receive Date: 20101216
  Receipt Date: 20101206
  Transmission Date: 20110411
  Serious: Yes (Hospitalization)
  Sender: FDA-Public Use
  Company Number: PHHY2010JP83339

PATIENT
  Age: 26 Year
  Sex: Female

DRUGS (2)
  1. VOLTAREN [Suspect]
     Indication: GINGIVAL PAIN
     Dosage: 1 DF
     Route: 048
  2. COLLAGEN [Concomitant]

REACTIONS (2)
  - CHOLECYSTOCHOLANGITIS [None]
  - HEPATITIS ACUTE [None]
